FAERS Safety Report 17948668 (Version 2)
Quarter: 2020Q3

REPORT INFORMATION
  Report Type: Spontaneous
  Country: CA (occurrence: CA)
  Receive Date: 20200626
  Receipt Date: 20200923
  Transmission Date: 20201103
  Serious: Yes (Death, Hospitalization, Other)
  Sender: FDA-Public Use
  Company Number: CA-ACCORD-186288

PATIENT
  Age: 53 Year
  Sex: Male

DRUGS (10)
  1. TACROLIMUS. [Suspect]
     Active Substance: TACROLIMUS
     Indication: PROPHYLAXIS AGAINST TRANSPLANT REJECTION
  2. VANCOMYCIN [Suspect]
     Active Substance: VANCOMYCIN
     Indication: ANTIBIOTIC THERAPY
     Route: 042
  3. PREDNISOLONE. [Suspect]
     Active Substance: PREDNISOLONE
     Indication: IMMUNOSUPPRESSANT DRUG THERAPY
  4. ANCOTIL [Suspect]
     Active Substance: FLUCYTOSINE
     Indication: DISSEMINATED CRYPTOCOCCOSIS
  5. PREDNISONE. [Suspect]
     Active Substance: PREDNISONE
     Indication: IMMUNOSUPPRESSANT DRUG THERAPY
  6. INSULIN [Concomitant]
     Active Substance: INSULIN NOS
  7. CEFTRIAXONE. [Suspect]
     Active Substance: CEFTRIAXONE
     Indication: ANTIBIOTIC THERAPY
     Dosage: POWDER FOR SOLUTION INTRAMUSCULAR
     Route: 042
  8. METRONIDAZOLE. [Suspect]
     Active Substance: METRONIDAZOLE
     Indication: ANTIBIOTIC THERAPY
  9. AMPHOTERICIN B/AMPHOTERICIN B/LIPOSOME [Suspect]
     Active Substance: AMPHOTERICIN B
     Indication: OSTEOMYELITIS FUNGAL
  10. METRONIDAZOLE. [Suspect]
     Active Substance: METRONIDAZOLE
     Indication: ANTIBIOTIC THERAPY
     Route: 042

REACTIONS (23)
  - Intracranial pressure increased [Fatal]
  - Pruritus [Fatal]
  - Renal failure [Fatal]
  - Skin lesion [Fatal]
  - Arthralgia [Fatal]
  - Cerebral cyst [Fatal]
  - Pancytopenia [Fatal]
  - Treatment noncompliance [Fatal]
  - Blood creatine increased [Fatal]
  - Osteomyelitis fungal [Fatal]
  - Electrolyte imbalance [Fatal]
  - Acute kidney injury [Fatal]
  - Headache [Fatal]
  - Therapy non-responder [Fatal]
  - Liver transplant failure [Fatal]
  - Muscle abscess [Fatal]
  - Skin ulcer [Fatal]
  - Tension headache [Fatal]
  - Vomiting [Fatal]
  - Disseminated cryptococcosis [Fatal]
  - Hepatic enzyme increased [Fatal]
  - Pulmonary mass [Fatal]
  - Pyrexia [Fatal]
